FAERS Safety Report 8905502 (Version 5)
Quarter: 2013Q3

REPORT INFORMATION
  Report Type: Spontaneous
  Country: JP (occurrence: JP)
  Receive Date: 20121111
  Receipt Date: 20130930
  Transmission Date: 20140515
  Serious: Yes (Disabling)
  Sender: FDA-Public Use
  Company Number: PHHY2012JP102860

PATIENT
  Sex: Female
  Weight: 55 kg

DRUGS (5)
  1. ZOMETA [Suspect]
     Indication: METASTASES TO BONE
     Dosage: 4 MG, UNK
     Route: 041
     Dates: start: 20100817, end: 20120918
  2. FEMARA [Suspect]
     Indication: BREAST CANCER
     Dosage: 2.5 MG, UNK
     Route: 048
     Dates: start: 20100622, end: 20120403
  3. ARIMIDEX [Suspect]
     Indication: BREAST CANCER
     Dosage: UNK UKN, UNK
     Route: 048
     Dates: start: 20120724, end: 20121016
  4. ARIMIDEX [Suspect]
     Dosage: 1 MG, UNK
     Route: 048
     Dates: end: 20121016
  5. AROMASIN [Suspect]
     Indication: BREAST CANCER
     Dosage: 25 MG, UNK
     Route: 048
     Dates: start: 20120501, end: 20120723

REACTIONS (11)
  - Fanconi syndrome [Not Recovered/Not Resolved]
  - Blood urea increased [Unknown]
  - Blood creatinine increased [Unknown]
  - Blood glucose increased [Unknown]
  - Blood potassium decreased [Unknown]
  - Blood phosphorus decreased [Unknown]
  - Blood lactate dehydrogenase increased [Unknown]
  - Beta 2 microglobulin increased [Unknown]
  - Beta-N-acetyl-D-glucosaminidase increased [Unknown]
  - Platelet count increased [Unknown]
  - Haemoglobin decreased [Unknown]
